FAERS Safety Report 11044627 (Version 1)
Quarter: 2015Q2

REPORT INFORMATION
  Report Type: Spontaneous
  Country: JP (occurrence: None)
  Receive Date: 20150415
  Receipt Date: 20150415
  Transmission Date: 20150821
  Serious: Yes (Hospitalization)
  Sender: FDA-Public Use
  Company Number: 2014FE02903

PATIENT
  Age: 90 Year
  Sex: Male
  Weight: 45 kg

DRUGS (3)
  1. HARNAL (TAMSULOSIN HYDROCHLORIDE) [Concomitant]
  2. CASODEX [Concomitant]
     Active Substance: BICALUTAMIDE
  3. DEGARELIX (DEGARELIX) POWDER AND SOLVENT FOR SOLUTION FOR INJECTION [Suspect]
     Active Substance: DEGARELIX
     Indication: PROSTATE CANCER
     Route: 058
     Dates: start: 20130624

REACTIONS (2)
  - Injection site erythema [None]
  - Gastric ulcer haemorrhage [None]

NARRATIVE: CASE EVENT DATE: 20130524
